FAERS Safety Report 7510211-4 (Version None)
Quarter: 2011Q2

REPORT INFORMATION
  Report Type: 
  Country: None (occurrence: None)
  Receive Date: 20110527
  Receipt Date: 20110223
  Transmission Date: 20111010
  Serious: Yes (Disabling)
  Sender: FDA-Public Use
  Company Number: US-BAYER-2011-017602

PATIENT
  Age: 38 Year
  Sex: Male
  Weight: 72.562 kg

DRUGS (2)
  1. AVELOX [Suspect]
     Indication: SINUSITIS
     Dosage: 400 MG, QD
     Route: 048
     Dates: start: 20110213, end: 20110215
  2. GUAIFENESIN [Concomitant]
     Indication: UPPER RESPIRATORY TRACT INFECTION
     Dosage: 200 MG, QD
     Route: 048
     Dates: start: 20110215

REACTIONS (1)
  - RASH [None]
